FAERS Safety Report 7130522-4 (Version None)
Quarter: 2010Q4

REPORT INFORMATION
  Report Type: 
  Country: None (occurrence: None)
  Receive Date: 20101201
  Receipt Date: 20101117
  Transmission Date: 20110411
  Serious: Yes (Life-Threatening, Hospitalization)
  Sender: FDA-Public Use
  Company Number: JP-SANOFI-AVENTIS-2010SA070537

PATIENT
  Age: 71 Year
  Sex: Female

DRUGS (4)
  1. CLOPIDOGREL BISULFATE [Suspect]
     Indication: PERCUTANEOUS CORONARY INTERVENTION
     Route: 065
     Dates: start: 20100401
  2. CLOPIDOGREL BISULFATE [Interacting]
     Indication: CORONARY ARTERY STENOSIS
     Route: 065
     Dates: start: 20100401
  3. METHOTREXATE [Interacting]
     Route: 065
  4. DIAGNOSTIC AGENTS [Concomitant]

REACTIONS (10)
  - BONE MARROW FAILURE [None]
  - C-REACTIVE PROTEIN INCREASED [None]
  - COUGH [None]
  - DRUG INTERACTION [None]
  - DYSPNOEA [None]
  - INFECTION SUSCEPTIBILITY INCREASED [None]
  - INFLAMMATION [None]
  - OFF LABEL USE [None]
  - PANCYTOPENIA [None]
  - PNEUMOCYSTIS JIROVECI PNEUMONIA [None]
